FAERS Safety Report 19194413 (Version 3)
Quarter: 2021Q2

REPORT INFORMATION
  Report Type: Spontaneous
  Country: CN (occurrence: CN)
  Receive Date: 20210429
  Receipt Date: 20210621
  Transmission Date: 20210717
  Serious: Yes (Hospitalization, Other)
  Sender: FDA-Public Use
  Company Number: CN-PFIZER INC-2021426569

PATIENT
  Age: 47 Year
  Sex: Male
  Weight: 64 kg

DRUGS (3)
  1. VFEND [Suspect]
     Active Substance: VORICONAZOLE
     Indication: ANTI-INFECTIVE THERAPY
  2. MICAFUNGIN. [Concomitant]
     Active Substance: MICAFUNGIN SODIUM
     Indication: ANTI-INFECTIVE THERAPY
     Dosage: UNK
     Dates: start: 20210219
  3. VFEND [Suspect]
     Active Substance: VORICONAZOLE
     Indication: THERAPEUTIC PROCEDURE
     Dosage: 200 MG, ONCE A DAY
     Route: 041
     Dates: start: 20210219, end: 20210224

REACTIONS (2)
  - Off label use [Unknown]
  - Epilepsy [Recovering/Resolving]

NARRATIVE: CASE EVENT DATE: 20210219
